FAERS Safety Report 10613914 (Version 3)
Quarter: 2014Q4

REPORT INFORMATION
  Report Type: Report from Study
  Country: US (occurrence: US)
  Receive Date: 20141128
  Receipt Date: 20141202
  Transmission Date: 20150529
  Serious: Yes (Death)
  Sender: FDA-Public Use
  Company Number: US-ACTELION-A-NJ2014-106854

PATIENT
  Age: 10 Year
  Sex: Female

DRUGS (2)
  1. TRACLEER [Suspect]
     Active Substance: BOSENTAN\BOSENTAN MONOHYDRATE
     Indication: PULMONARY ARTERIAL HYPERTENSION
     Dosage: UNK
     Route: 048
  2. SILDENAFIL. [Concomitant]
     Active Substance: SILDENAFIL

REACTIONS (4)
  - Cardiac arrest [Fatal]
  - General physical health deterioration [Unknown]
  - Heart disease congenital [Fatal]
  - Cardiac failure [Fatal]

NARRATIVE: CASE EVENT DATE: 20141106
